FAERS Safety Report 4403868-8 (Version None)
Quarter: 2004Q3

REPORT INFORMATION
  Report Type: 
  Country: None (occurrence: None)
  Receive Date: 20040719
  Receipt Date: 20040708
  Transmission Date: 20050211
  Serious: Yes (Hospitalization)
  Sender: FDA-Public Use
  Company Number: 04P-028-0264146-00

PATIENT

DRUGS (1)
  1. VALPROIC ACID [Suspect]
     Dosage: PER ORAL
     Route: 048

REACTIONS (3)
  - DEPRESSED LEVEL OF CONSCIOUSNESS [None]
  - HAEMODYNAMIC INSTABILITY [None]
  - OVERDOSE [None]
